FAERS Safety Report 4732558-7 (Version None)
Quarter: 2005Q3

REPORT INFORMATION
  Report Type: 
  Country: None (occurrence: None)
  Receive Date: 20050801
  Receipt Date: 20050725
  Transmission Date: 20060218
  Serious: Yes (Hospitalization, Other)
  Sender: FDA-Public Use
  Company Number: 2005-03-0835

PATIENT
  Age: 50 Year
  Sex: Female
  Weight: 70.3075 kg

DRUGS (8)
  1. PEG-INTRON [Suspect]
     Indication: HEPATITIS C
     Dosage: 96 MCG QW; SUBCUTANEOUS
     Route: 058
     Dates: start: 20040910, end: 20050617
  2. REBETOL [Suspect]
     Indication: HEPATITIS C
     Dosage: 1000-400MG, QD; ORAL
     Route: 048
     Dates: start: 20040910, end: 20050620
  3. CELEBREX [Concomitant]
  4. EFFEXOR [Concomitant]
  5. WELLBUTRIN [Concomitant]
  6. VIVELLE [Concomitant]
  7. NEXIUM [Concomitant]
  8. ZANTAC [Concomitant]

REACTIONS (19)
  - BLOODY DISCHARGE [None]
  - BREAST CANCER FEMALE [None]
  - DEHYDRATION [None]
  - DIARRHOEA [None]
  - HAEMATOCHEZIA [None]
  - HAEMOGLOBIN DECREASED [None]
  - HEADACHE [None]
  - HEART RATE INCREASED [None]
  - HEPATOMEGALY [None]
  - NAUSEA [None]
  - NEUTROPENIA [None]
  - PALPITATIONS [None]
  - PERIRECTAL ABSCESS [None]
  - PROCTALGIA [None]
  - STAPHYLOCOCCAL INFECTION [None]
  - STREPTOCOCCAL INFECTION [None]
  - VOMITING [None]
  - WEIGHT DECREASED [None]
  - WHITE BLOOD CELL COUNT DECREASED [None]
